FAERS Safety Report 7426288-0 (Version None)
Quarter: 2011Q2

REPORT INFORMATION
  Report Type: 
  Country: None (occurrence: None)
  Receive Date: 20110420
  Receipt Date: 20110418
  Transmission Date: 20111010
  Serious: Yes (Death, Other)
  Sender: FDA-Public Use
  Company Number: A0918697A

PATIENT
  Age: 34 Year
  Sex: Male
  Weight: 160 kg

DRUGS (11)
  1. ZANAMIVIR [Suspect]
     Indication: H1N1 INFLUENZA
     Route: 042
     Dates: start: 20110303, end: 20110308
  2. HEPARIN [Concomitant]
     Dates: start: 20110227, end: 20110310
  3. FUROSEMIDE [Concomitant]
     Dates: start: 20110227, end: 20110310
  4. CEFTRIAXONE [Concomitant]
     Dates: start: 20110224, end: 20110226
  5. VANCOMYCIN [Concomitant]
     Dates: start: 20110226, end: 20110308
  6. CEFEPIME [Concomitant]
     Dates: start: 20110302, end: 20110307
  7. AZETREONAM [Concomitant]
     Dates: start: 20110308, end: 20110310
  8. TAMIFLU [Concomitant]
     Dosage: 150MG TWICE PER DAY
     Dates: start: 20110226, end: 20110308
  9. IMIPENEM AND CILASTATIN SODIUM [Concomitant]
  10. AZITHROMYCIN [Concomitant]
     Route: 042
     Dates: start: 20110226, end: 20110228
  11. MOXIFLOXACIN [Concomitant]
     Dates: start: 20110301, end: 20110304

REACTIONS (2)
  - ACUTE RESPIRATORY DISTRESS SYNDROME [None]
  - RESPIRATORY FAILURE [None]
